FAERS Safety Report 9187105 (Version 4)
Quarter: 2013Q2

REPORT INFORMATION
  Report Type: Report from Study
  Country: DE (occurrence: DE)
  Receive Date: 20130325
  Receipt Date: 20130606
  Transmission Date: 20140414
  Serious: Yes (Death, Hospitalization, Other)
  Sender: FDA-Public Use
  Company Number: DE-ASTELLAS-2013EU002629

PATIENT
  Age: 60 Year
  Sex: Male
  Weight: 95 kg

DRUGS (4)
  1. ENZALUTAMIDE [Suspect]
     Indication: PROSTATE CANCER
     Dosage: 160 MG, UID/QD
     Route: 048
     Dates: start: 20130308, end: 20130311
  2. HYDROMORFON [Concomitant]
     Dosage: 850 MG, UNKNOWN/D
     Route: 065
  3. DEXAMETHASON                       /00016001/ [Concomitant]
     Dosage: 24 MG, UNKNOWN/D
     Route: 065
     Dates: start: 20130307
  4. METAMIZOL                          /06276704/ [Concomitant]
     Dosage: 18 MG, UNKNOWN/D
     Route: 065
     Dates: start: 20130307

REACTIONS (9)
  - Malignant neoplasm progression [Fatal]
  - Pneumonia [Fatal]
  - Painful respiration [Not Recovered/Not Resolved]
  - Hot flush [Recovering/Resolving]
  - Heart rate increased [Recovering/Resolving]
  - Anxiety [Recovering/Resolving]
  - Fall [Unknown]
  - Fear [Recovered/Resolved]
  - Hypersensitivity [Unknown]
